FAERS Safety Report 14454401 (Version 1)
Quarter: 2018Q1

REPORT INFORMATION
  Report Type: Spontaneous
  Country: US (occurrence: US)
  Receive Date: 20180128
  Receipt Date: 20180128
  Transmission Date: 20180509
  Serious: No
  Sender: FDA-Public Use
  Company Number: None

PATIENT

DRUGS (1)
  1. METHYLPHENIDATE ER 27MG AND 54 MG [Suspect]
     Active Substance: METHYLPHENIDATE
     Indication: ATTENTION DEFICIT/HYPERACTIVITY DISORDER
     Dosage: ?          QUANTITY:1 TABLET(S);?
     Route: 048
     Dates: start: 20171213, end: 20180111

REACTIONS (8)
  - Abnormal behaviour [None]
  - Emotional disorder [None]
  - Drug ineffective [None]
  - Educational problem [None]
  - Anger [None]
  - Product substitution issue [None]
  - Frustration tolerance decreased [None]
  - Disturbance in attention [None]

NARRATIVE: CASE EVENT DATE: 20180104
